FAERS Safety Report 17984848 (Version 1)
Quarter: 2020Q3

REPORT INFORMATION
  Report Type: Report from Study
  Country: US (occurrence: US)
  Receive Date: 20200706
  Receipt Date: 20200706
  Transmission Date: 20201103
  Serious: Yes (Other)
  Sender: FDA-Public Use
  Company Number: US-JNJFOC-20200635505

PATIENT
  Age: 68 Year
  Sex: Female

DRUGS (1)
  1. SIMPONI [Suspect]
     Active Substance: GOLIMUMAB
     Indication: RHEUMATOID ARTHRITIS
     Route: 058
     Dates: start: 20200623

REACTIONS (3)
  - Sinusitis [Unknown]
  - Rheumatoid arthritis [Not Recovered/Not Resolved]
  - Tooth abscess [Unknown]

NARRATIVE: CASE EVENT DATE: 202005
